FAERS Safety Report 21120707 (Version 1)
Quarter: 2022Q3

REPORT INFORMATION
  Report Type: Spontaneous
  Country: US (occurrence: None)
  Receive Date: 20220722
  Receipt Date: 20220722
  Transmission Date: 20221026
  Serious: No
  Sender: FDA-Public Use
  Company Number: None

PATIENT
  Sex: Male

DRUGS (1)
  1. EUCRISA [Suspect]
     Active Substance: CRISABOROLE
     Indication: Dermatitis atopic
     Dosage: OTHER STRENGTH : 2% 60GM;?FREQUENCY : TWICE A DAY;?
     Route: 061
     Dates: start: 202206

REACTIONS (1)
  - COVID-19 [None]
